FAERS Safety Report 7151580-7 (Version None)
Quarter: 2010Q4

REPORT INFORMATION
  Report Type: 
  Country: None (occurrence: None)
  Receive Date: 20101123
  Receipt Date: 20100928
  Transmission Date: 20110411
  Serious: No
  Sender: FDA-Public Use
  Company Number: 007126

PATIENT
  Sex: Male

DRUGS (3)
  1. CIMZIA [Suspect]
     Indication: CROHN'S DISEASE
     Dosage: (200 MG SUBCUTANEOUS) ; (200 MG 1X/2 WEEKS SUBCUTANEOUS)
     Route: 058
     Dates: start: 20081031
  2. CIMZIA [Suspect]
     Indication: CROHN'S DISEASE
     Dosage: (200 MG SUBCUTANEOUS) ; (200 MG 1X/2 WEEKS SUBCUTANEOUS)
     Route: 058
     Dates: start: 20100924
  3. CIMZIA [Suspect]

REACTIONS (3)
  - ABDOMINAL PAIN [None]
  - CROHN'S DISEASE [None]
  - ILEUS [None]
